FAERS Safety Report 9176608 (Version 1)
Quarter: 2013Q1

REPORT INFORMATION
  Report Type: Spontaneous
  Country: US (occurrence: US)
  Receive Date: 20130321
  Receipt Date: 20130321
  Transmission Date: 20140127
  Serious: Yes (Hospitalization, Other)
  Sender: FDA-Public Use
  Company Number: US-JNJFOC-20130304551

PATIENT
  Age: 43 Year
  Sex: Female

DRUGS (2)
  1. LOPERAMIDE [Suspect]
     Route: 065
  2. LOPERAMIDE [Suspect]
     Indication: DRUG ABUSE
     Route: 065

REACTIONS (6)
  - Dizziness [Recovered/Resolved]
  - Drug abuse [Unknown]
  - Ventricular tachycardia [Recovered/Resolved]
  - Overdose [Recovered/Resolved]
  - Palpitations [None]
  - Electrocardiogram QT prolonged [None]
